FAERS Safety Report 4378293-9 (Version None)
Quarter: 2004Q2

REPORT INFORMATION
  Report Type: 
  Country: None (occurrence: None)
  Receive Date: 20040601
  Receipt Date: 20040301
  Transmission Date: 20050107
  Serious: No
  Sender: FDA-Public Use
  Company Number: WAES 0403USA00152

PATIENT
  Sex: Male

DRUGS (2)
  1. ZETIA [Suspect]
     Dosage: 10 MG/DAILY/PO
     Route: 048
     Dates: start: 20040201
  2. WELCHOL [Concomitant]

REACTIONS (1)
  - LIVER FUNCTION TEST ABNORMAL [None]
